FAERS Safety Report 5441810-1 (Version None)
Quarter: 2007Q3

REPORT INFORMATION
  Report Type: 
  Country: None (occurrence: None)
  Receive Date: 20070830
  Receipt Date: 20070830
  Transmission Date: 20080115
  Serious: Yes (Other)
  Sender: FDA-Public Use
  Company Number: None

PATIENT
  Age: 41 Year
  Sex: Female
  Weight: 99.7913 kg

DRUGS (2)
  1. YASMIN [Suspect]
     Indication: MENSTRUATION IRREGULAR
     Dosage: 1 TABLET 1 PER DAY PO
     Route: 048
     Dates: start: 20070131, end: 20070210
  2. YASMIN [Suspect]
     Indication: VAGINAL HAEMORRHAGE
     Dosage: 1 TABLET 1 PER DAY PO
     Route: 048
     Dates: start: 20070131, end: 20070210

REACTIONS (1)
  - CEREBROVASCULAR ACCIDENT [None]
